FAERS Safety Report 10960691 (Version 2)
Quarter: 2015Q2

REPORT INFORMATION
  Report Type: Spontaneous
  Country: US (occurrence: US)
  Receive Date: 20150327
  Receipt Date: 20150421
  Transmission Date: 20150821
  Serious: Yes (Hospitalization, Other)
  Sender: FDA-Public Use
  Company Number: US-BEH-2015049862

PATIENT
  Age: 58 Year
  Sex: Male
  Weight: 56.2 kg

DRUGS (30)
  1. PRIVIGEN [Suspect]
     Active Substance: HUMAN IMMUNOGLOBULIN G
     Indication: BONE MARROW TRANSPLANT
     Dosage: 5 GM VIAL; 400 MG/KG EVERY 4 WEEKS;DOSING PERIOD 04MAR2015 TO 31MAR2015
     Route: 042
  2. ASPIRIN. [Concomitant]
     Active Substance: ASPIRIN
  3. BIOTIN [Concomitant]
     Active Substance: BIOTIN
  4. PRIVIGEN [Suspect]
     Active Substance: HUMAN IMMUNOGLOBULIN G
     Indication: IMMUNODEFICIENCY COMMON VARIABLE
     Route: 042
  5. SODIUM CHLORIDE. [Concomitant]
     Active Substance: SODIUM CHLORIDE
  6. ANDROGEL [Concomitant]
     Active Substance: TESTOSTERONE
  7. ADVAIR HFA [Concomitant]
     Active Substance: FLUTICASONE PROPIONATE\SALMETEROL XINAFOATE
  8. CALCIUM D3 [Concomitant]
     Active Substance: CALCIUM\CHOLECALCIFEROL
  9. PRIVIGEN [Suspect]
     Active Substance: HUMAN IMMUNOGLOBULIN G
     Indication: RHINITIS
     Route: 042
  10. AUGMENTIN [Concomitant]
     Active Substance: AMOXICILLIN\CLAVULANATE POTASSIUM
  11. VALACYCLOVIR [Concomitant]
     Active Substance: VALACYCLOVIR HYDROCHLORIDE
  12. RESTASIS [Concomitant]
     Active Substance: CYCLOSPORINE
  13. LIDOCAINE. [Concomitant]
     Active Substance: LIDOCAINE
  14. SIROLIMUS. [Concomitant]
     Active Substance: SIROLIMUS
  15. SINGULAIR [Concomitant]
     Active Substance: MONTELUKAST SODIUM
  16. FLUTICASONE [Concomitant]
     Active Substance: FLUTICASONE\FLUTICASONE PROPIONATE
  17. PRIVIGEN [Suspect]
     Active Substance: HUMAN IMMUNOGLOBULIN G
     Indication: ACUTE LYMPHOCYTIC LEUKAEMIA
     Dosage: 20 GM VIAL; 400 MG/KGEVERY 4 WEEKS;DOSING PERIOD 04MAR2015 TO 31MAR2015
     Route: 042
  18. PRIVIGEN [Suspect]
     Active Substance: HUMAN IMMUNOGLOBULIN G
     Indication: GRAFT VERSUS HOST DISEASE
     Dates: start: 20150305
  19. HEPARIN [Concomitant]
     Active Substance: HEPARIN SODIUM
  20. EPIPEN [Concomitant]
     Active Substance: EPINEPHRINE
  21. PREDNISONE. [Concomitant]
     Active Substance: PREDNISONE
  22. CIPRO [Concomitant]
     Active Substance: CIPROFLOXACIN HYDROCHLORIDE
  23. DOXYCYCLINE. [Concomitant]
     Active Substance: DOXYCYCLINE
  24. MAGNESIUM OXIDE. [Concomitant]
     Active Substance: MAGNESIUM OXIDE
  25. IRON [Concomitant]
     Active Substance: IRON
  26. OMEGA 3 FISH OIL [Concomitant]
     Active Substance: FISH OIL\OMEGA-3 FATTY ACIDS
  27. ACETAMINOPHEN. [Concomitant]
     Active Substance: ACETAMINOPHEN
  28. CENTRUM SILVER [Concomitant]
     Active Substance: VITAMINS
  29. SOTALOL. [Concomitant]
     Active Substance: SOTALOL
  30. ATOVAQUONE. [Concomitant]
     Active Substance: ATOVAQUONE

REACTIONS (3)
  - Pyrexia [Unknown]
  - Lower respiratory tract infection [Unknown]
  - Sinusitis [Unknown]

NARRATIVE: CASE EVENT DATE: 20150313
